FAERS Safety Report 12652817 (Version 1)
Quarter: 2016Q3

REPORT INFORMATION
  Report Type: Report from Study
  Country: CN (occurrence: CN)
  Receive Date: 20160815
  Receipt Date: 20160815
  Transmission Date: 20161109
  Serious: Yes (Death, Hospitalization)
  Sender: FDA-Public Use
  Company Number: CN-MYLANLABS-2016M1033710

PATIENT

DRUGS (7)
  1. BORTEZOMIB [Suspect]
     Active Substance: BORTEZOMIB
     Indication: PLASMA CELL MYELOMA
     Dosage: CYCLE1: 2MG ON DAYS 1,4,7 AND 11, CYCLE2: 2MG ON DAYS 1,8,15 AND 22, EVERY 28DAYS
     Route: 065
     Dates: start: 20100622
  2. VINCRISTINE [Suspect]
     Active Substance: VINCRISTINE
     Indication: PLASMA CELL MYELOMA
     Dosage: 0.5MG/DAY ON DAYS 1-4 EVERY 28 DAYS
     Route: 065
     Dates: start: 20101116
  3. MELPHALAN [Suspect]
     Active Substance: MELPHALAN
     Indication: PLASMA CELL MYELOMA
     Dosage: 12MG/DAY ON DAYS 1-4 EVERY 28 DAYS
     Route: 065
     Dates: start: 20101116
  4. DEXAMETHASONE. [Suspect]
     Active Substance: DEXAMETHASONE
     Indication: PLASMA CELL MYELOMA
     Dosage: CYCLE1: 20MG/DAY ON DAYS1,2,4,5,7,8,11AND12, CYCLE2: 20MG/DAY ON DAYS1,2,8,9,15 EVERY 28DAYS
     Dates: start: 20100622
  5. PIRARUBICIN [Suspect]
     Active Substance: PIRARUBICIN
     Indication: PLASMA CELL MYELOMA
     Dosage: 10MG/DAY ON 1-4 DAYS EVERY 28 DAYS
     Route: 065
     Dates: start: 20101116
  6. LENALIDOMIDE [Suspect]
     Active Substance: LENALIDOMIDE
     Indication: PLASMA CELL MYELOMA
     Dosage: 10MG/DAY ON DAYS 1-21 EVERY 28 DAYS
     Dates: start: 20100915
  7. THALIDOMIDE [Suspect]
     Active Substance: THALIDOMIDE
     Indication: PLASMA CELL MYELOMA
     Dosage: 200MG/DAY AS MAINTENANCE THERAPY
     Route: 065
     Dates: start: 20110209, end: 20130913

REACTIONS (1)
  - Lymphocytic leukaemia [Fatal]
